FAERS Safety Report 9026528 (Version 1)
Quarter: 2012Q4

REPORT INFORMATION
  Report Type: Spontaneous
  Country: IL (occurrence: None)
  Receive Date: 20121211
  Receipt Date: 20121211
  Transmission Date: 20130627
  Serious: Yes (Life-Threatening, Hospitalization)
  Sender: FDA-Public Use
  Company Number: 2012-1113

PATIENT
  Age: 73 Year
  Sex: Female
  Weight: 59.5 kg

DRUGS (15)
  1. CARFILZOMIB [Suspect]
     Indication: MULTIPLE MYELOMA
     Dosage: 35 d; 9.3714 mg (32.8 mg, days 1, 2), intravenous
     Route: 042
     Dates: start: 20120819, end: 20120820
  2. CARFILZOMIB [Suspect]
     Indication: MULTIPLE MYELOMA
     Dosage: 8.4343 mg (44.28 mg, days 8, 9, 15, 16), intravenous
     Route: 042
     Dates: start: 20120826, end: 20120903
  3. CARFILZOMIB [Suspect]
     Indication: MULTIPLE MYELOMA
     Dosage: 9.4886 mg (44.28 mg, days 1, 2, 8, 9, 15, 16), intravenous
     Route: 042
     Dates: start: 20120919, end: 20121015
  4. CARFILZOMIB [Suspect]
     Indication: MULTIPLE MYELOMA
     Dosage: 7.0286 mg (32.8 mg, days 1, 2, 8, 9, 15, 16), intravenous
     Route: 042
     Dates: start: 20121028
  5. DEXAMETHASONE (DEXAMETHASONE) (DEXAMETHASONE) [Concomitant]
  6. LANTON (LANSOPRAZOLE) (LANSOPRAZOLE) [Concomitant]
  7. ELATROLET (AMITRIPTYLINE HYDROCHLORIDE) (AMITRIPTYLINE HYDROCHLORIDE) [Concomitant]
  8. ZINNAT (CEFUROXIME SODIUM) (CEFUROXIME SODIUM) [Concomitant]
  9. CALCIUM (CALCIUM) (CALCIUM) [Concomitant]
  10. VITAMIN D (ERGOCALCIFEROL) (ERGOCALCIFEROL) [Concomitant]
  11. PROBIOTIC (ACIDOPHILUS) (LACTOBACILLUS ACIDOPHILUS) (LACTOBACILLUS ACIDOPHILUS) [Concomitant]
  12. MAGNESIUM CITRATE (MAGNESIUM CITRATE) (MAGNESIUM CITRATE) [Concomitant]
  13. VITAMIN B (VITAMIN B COMPLEX) (VITAMIN B COMPLEX) [Concomitant]
  14. ZYLOL (ALLOPURINOL) (ALLOPURINOL) [Concomitant]
  15. ACYCLOVIR (ACICLOVIR) (ACICLOVIR) [Concomitant]

REACTIONS (7)
  - Pulmonary congestion [None]
  - Hypoxia [None]
  - Bundle branch block left [None]
  - Pericardial effusion [None]
  - Lung infiltration [None]
  - Troponin T increased [None]
  - Cardiac ventricular disorder [None]
